FAERS Safety Report 8523713-9 (Version None)
Quarter: 2012Q3

REPORT INFORMATION
  Report Type: 
  Country: None (occurrence: None)
  Receive Date: 20120720
  Receipt Date: 20120712
  Transmission Date: 20120928
  Serious: Yes (Life-Threatening, Hospitalization, Other)
  Sender: FDA-Public Use
  Company Number: DE-JNJFOC-20120605284

PATIENT
  Sex: Male

DRUGS (6)
  1. REMICADE [Suspect]
     Indication: CROHN'S DISEASE
     Route: 042
  2. REMICADE [Suspect]
     Dosage: SECOND INFUSION
     Route: 042
     Dates: start: 20120606
  3. PANTOPRAZOLE [Concomitant]
     Route: 065
  4. PREDNISOLONE [Concomitant]
     Dosage: REPORTED AS DECREASING DOSE
     Route: 065
  5. ENOXAPARIN SODIUM [Concomitant]
     Route: 065
  6. MESALAMINE [Concomitant]
     Route: 065

REACTIONS (2)
  - ATRIOVENTRICULAR BLOCK COMPLETE [None]
  - HYPERSENSITIVITY [None]
